FAERS Safety Report 15429765 (Version 1)
Quarter: 2018Q3

REPORT INFORMATION
  Report Type: Spontaneous
  Country: GB (occurrence: GB)
  Receive Date: 20180926
  Receipt Date: 20180926
  Transmission Date: 20181010
  Serious: Yes (Other)
  Sender: FDA-Public Use
  Company Number: PHHY2018GB102804

PATIENT
  Sex: Female

DRUGS (1)
  1. NITROGLYCERIN. [Suspect]
     Active Substance: NITROGLYCERIN
     Indication: PROMOTION OF PERIPHERAL CIRCULATION
     Dosage: 5 MG,QD (PATCH WAS PLACED ON THE MID?ANTERIOR ASPECT OF THE AFFECTED LOWER LIMBS FIRST THING IN THE
     Route: 062

REACTIONS (3)
  - Rash [Unknown]
  - Off label use [Unknown]
  - Drug administered to patient of inappropriate age [Unknown]
